FAERS Safety Report 5261461-1 (Version None)
Quarter: 2007Q1

REPORT INFORMATION
  Report Type: 
  Country: None (occurrence: None)
  Receive Date: 20070307
  Receipt Date: 20070222
  Transmission Date: 20070707
  Serious: Yes (Hospitalization)
  Sender: FDA-Public Use
  Company Number: 2007000406

PATIENT
  Age: 80 Year
  Sex: Female

DRUGS (4)
  1. MACUGEN [Suspect]
     Indication: MACULAR DEGENERATION
     Dosage: 0.3 MG (Q6WKS), INTRA-VITREAL
     Dates: start: 20070207
  2. VASTAREL [Concomitant]
  3. LEVOTHYROXINE SODIUM [Concomitant]
  4. SOTALOL HCL [Concomitant]

REACTIONS (2)
  - BRADYCARDIA [None]
  - VERTIGO [None]
